FAERS Safety Report 14189953 (Version 3)
Quarter: 2018Q2

REPORT INFORMATION
  Report Type: Spontaneous
  Country: US (occurrence: US)
  Receive Date: 20171115
  Receipt Date: 20180507
  Transmission Date: 20180711
  Serious: No
  Sender: FDA-Public Use
  Company Number: US-PFIZER INC-2017488771

PATIENT
  Age: 58 Year
  Sex: Female

DRUGS (1)
  1. IBRANCE [Suspect]
     Active Substance: PALBOCICLIB
     Indication: BREAST CANCER
     Dosage: 125 MG, 1X/DAY (21 DAYS)
     Route: 048
     Dates: start: 20170804

REACTIONS (4)
  - Skin exfoliation [Unknown]
  - Alopecia [Unknown]
  - Dizziness [Unknown]
  - Ear disorder [Unknown]

NARRATIVE: CASE EVENT DATE: 20171110
